FAERS Safety Report 5718384-0 (Version None)
Quarter: 2008Q2

REPORT INFORMATION
  Report Type: 
  Country: None (occurrence: None)
  Receive Date: 20080425
  Receipt Date: 20070424
  Transmission Date: 20081010
  Serious: No
  Sender: FDA-Public Use
  Company Number: A0648567A

PATIENT
  Age: 56 Year
  Sex: Female

DRUGS (2)
  1. DEXEDRINE [Suspect]
     Indication: DEPRESSION
     Dosage: 10MG PER DAY
     Route: 048
  2. PROZAC [Concomitant]

REACTIONS (1)
  - PRURITUS [None]
